FAERS Safety Report 7956095-1 (Version None)
Quarter: 2011Q4

REPORT INFORMATION
  Report Type: 
  Country: None (occurrence: None)
  Receive Date: 20111205
  Receipt Date: 20111122
  Transmission Date: 20120403
  Serious: Yes (Hospitalization)
  Sender: FDA-Public Use
  Company Number: CA-JNJFOC-20111110903

PATIENT
  Sex: Female

DRUGS (3)
  1. PREDNISONE TAB [Concomitant]
     Route: 065
  2. REMICADE [Suspect]
     Indication: PRODUCT USED FOR UNKNOWN INDICATION
     Dosage: LAST INFUSION WAS ON 24-OCT-2011
     Route: 042
     Dates: start: 20110701, end: 20111024
  3. IMURAN [Concomitant]
     Route: 065

REACTIONS (1)
  - ILEOSTOMY [None]
